FAERS Safety Report 4789487-2 (Version None)
Quarter: 2005Q4

REPORT INFORMATION
  Report Type: 
  Country: None (occurrence: None)
  Receive Date: 20051006
  Receipt Date: 20050930
  Transmission Date: 20060501
  Serious: Yes (Hospitalization)
  Sender: FDA-Public Use
  Company Number: DE-JNJFOC-20051000004

PATIENT
  Sex: Male
  Weight: 70 kg

DRUGS (12)
  1. DURAGESIC-100 [Suspect]
     Route: 062
  2. DURAGESIC-100 [Suspect]
     Route: 062
  3. VELCADE [Concomitant]
     Route: 042
  4. MELPHALAN [Concomitant]
     Route: 065
  5. PREDNISON [Concomitant]
     Route: 065
  6. OMEP [Concomitant]
     Route: 048
  7. HYDROCHLOROTHIAZIDE [Concomitant]
     Route: 048
  8. SEVREDOL [Concomitant]
     Route: 048
  9. SEVREDOL [Concomitant]
     Route: 048
  10. MEPROLOL [Concomitant]
     Route: 048
  11. AMPHO-MORONAL [Concomitant]
     Route: 048
  12. KALINOR [Concomitant]
     Route: 048

REACTIONS (1)
  - PNEUMONIA [None]
